FAERS Safety Report 7658200-3 (Version None)
Quarter: 2011Q3

REPORT INFORMATION
  Report Type: 
  Country: None (occurrence: None)
  Receive Date: 20110805
  Receipt Date: 20110727
  Transmission Date: 20111222
  Serious: Yes (Hospitalization)
  Sender: FDA-Public Use
  Company Number: CH-JNJFOC-20110205817

PATIENT
  Age: 63 Year
  Sex: Female
  Weight: 87 kg

DRUGS (7)
  1. GOLIMUMAB [Suspect]
     Route: 058
     Dates: start: 20110126
  2. ACETAMINOPHEN [Concomitant]
     Indication: ARTHRALGIA
     Route: 048
     Dates: start: 20100913
  3. HYDROCORTISONE [Concomitant]
     Indication: HYPOPITUITARISM
     Route: 048
     Dates: start: 19900101
  4. GOLIMUMAB [Suspect]
     Indication: RHEUMATOID ARTHRITIS
     Route: 058
     Dates: start: 20101102
  5. LEVOTHYROXINE SODIUM [Concomitant]
     Indication: HYPOPITUITARISM
     Route: 048
     Dates: start: 19900101
  6. METHOTREXATE [Concomitant]
     Indication: RHEUMATOID ARTHRITIS
     Route: 048
     Dates: start: 20100901
  7. TAMBOCOR [Concomitant]
     Indication: ATRIAL FIBRILLATION
     Route: 048
     Dates: start: 20101123

REACTIONS (1)
  - ABDOMINAL PAIN [None]
